FAERS Safety Report 8764774 (Version 2)
Quarter: 2012Q4

REPORT INFORMATION
  Report Type: 
  Country: IE (occurrence: IE)
  Receive Date: 20120831
  Receipt Date: 20120924
  Transmission Date: 20130627
  Serious: Yes (Other)
  Sender: FDA-Public Use
  Company Number: IE-ROCHE-1108683

PATIENT
  Age: 23 Year
  Sex: Male

DRUGS (1)
  1. ROACCUTANE [Suspect]
     Indication: ACNE
     Route: 048
     Dates: start: 201207, end: 20120724

REACTIONS (2)
  - Vision blurred [Recovered/Resolved]
  - Dyspnoea [Recovered/Resolved]
